FAERS Safety Report 4684480-2 (Version None)
Quarter: 2005Q2

REPORT INFORMATION
  Report Type: 
  Country: None (occurrence: None)
  Receive Date: 20050531
  Receipt Date: 20041206
  Transmission Date: 20051028
  Serious: Yes (Other)
  Sender: FDA-Public Use
  Company Number: USA040876493

PATIENT
  Age: 41 Year
  Sex: Female
  Weight: 73 kg

DRUGS (8)
  1. ZYPREXA [Suspect]
     Dosage: 2.5 MG/2 DAY
     Route: 048
     Dates: start: 20040615, end: 20040730
  2. LITHIUM [Concomitant]
  3. DILANTIN [Concomitant]
  4. PHENOBARBITAL TAB [Concomitant]
  5. PAXIL [Concomitant]
  6. TRAZOLAN (TRAZODONE HYDROCHLORIDE) [Concomitant]
  7. EFFEXOR [Concomitant]
  8. EFFEXOR [Concomitant]

REACTIONS (7)
  - CHEST DISCOMFORT [None]
  - CONVULSION [None]
  - FALL [None]
  - ORTHOSTATIC HYPOTENSION [None]
  - POOR QUALITY DRUG ADMINISTERED [None]
  - SYNCOPE [None]
  - TREMOR [None]
